FAERS Safety Report 7886905-8 (Version None)
Quarter: 2011Q4

REPORT INFORMATION
  Report Type: 
  Country: None (occurrence: None)
  Receive Date: 20111102
  Receipt Date: 20110712
  Transmission Date: 20120403
  Serious: Yes (Other)
  Sender: FDA-Public Use
  Company Number: US-AMGEN-USASP2011028565

PATIENT
  Age: 41 Year
  Sex: Female

DRUGS (12)
  1. CYCLOPHOSPHAMIDE [Concomitant]
     Dosage: 10 MG, UNK
     Route: 048
  2. CITALOPRAM HYDROBROMIDE [Concomitant]
     Dosage: 20 MG, UNK
     Route: 048
  3. PRAMIPEXOLE DIHYDROCHLORIDE [Concomitant]
     Dosage: 0.25 MG, UNK
     Route: 048
  4. IBUPROFEN (ADVIL) [Concomitant]
  5. TRIAMTEREEN/HYDROCHLOOTTHIAZIDE [Concomitant]
     Route: 048
  6. AMITRIPTYLINE HCL [Concomitant]
     Dosage: 10 MG, UNK
     Route: 048
  7. LISINOPRIL [Concomitant]
     Dosage: 5 MG, UNK
     Route: 048
  8. OMEPRAZOLE [Concomitant]
     Dosage: 40 MG, UNK
     Route: 048
  9. KEPPRA [Concomitant]
     Dosage: 500 MG, UNK
     Route: 048
  10. ARAVA [Concomitant]
     Dosage: 10 MG, UNK
     Route: 048
  11. HYDROCODONE BITARTRATE AND ACETAMINOPHEN [Concomitant]
     Dosage: 325 MG, UNK
     Route: 048
  12. ENBREL [Suspect]
     Indication: PSORIATIC ARTHROPATHY
     Dosage: 50 MG, QWK
     Route: 058
     Dates: start: 20110608

REACTIONS (3)
  - WHITE BLOOD CELL COUNT DECREASED [None]
  - ANAEMIA [None]
  - SINUSITIS [None]
